FAERS Safety Report 5904160-2 (Version None)
Quarter: 2008Q4

REPORT INFORMATION
  Report Type: 
  Country: None (occurrence: None)
  Receive Date: 20081001
  Receipt Date: 20080922
  Transmission Date: 20090506
  Serious: Yes (Hospitalization)
  Sender: FDA-Public Use
  Company Number: PL-RANBAXY-2008RR-18200

PATIENT
  Age: 22 Month
  Sex: Female

DRUGS (4)
  1. ACETAMINOPHEN [Suspect]
     Indication: RESPIRATORY TRACT INFECTION
     Dosage: 10
     Route: 048
  2. ACETAMINOPHEN [Suspect]
     Indication: PYREXIA
  3. IBUFEN [Suspect]
     Indication: RESPIRATORY TRACT INFECTION
     Dosage: 100MG/5ML
     Route: 048
  4. IBUFEN [Suspect]
     Indication: PYREXIA

REACTIONS (1)
  - GASTRITIS HAEMORRHAGIC [None]
